FAERS Safety Report 7963700-2 (Version None)
Quarter: 2011Q4

REPORT INFORMATION
  Report Type: 
  Country: None (occurrence: None)
  Receive Date: 20111208
  Receipt Date: 20111128
  Transmission Date: 20120403
  Serious: Yes (Other)
  Sender: FDA-Public Use
  Company Number: US-BAYER-2011-097527

PATIENT
  Age: 28 Year
  Sex: Female
  Weight: 53.968 kg

DRUGS (3)
  1. MIRENA [Suspect]
     Indication: CONTRACEPTION
     Dosage: 20 MCG/24HR, CONT
     Route: 015
     Dates: start: 20100301, end: 20110907
  2. PHENTERMINE [Concomitant]
     Route: 048
  3. PRISTIQ [Concomitant]
     Route: 048

REACTIONS (1)
  - METRORRHAGIA [None]
